FAERS Safety Report 8426688-6 (Version None)
Quarter: 2012Q2

REPORT INFORMATION
  Report Type: 
  Country: None (occurrence: None)
  Receive Date: 20120611
  Receipt Date: 20120610
  Transmission Date: 20120825
  Serious: Yes (Other)
  Sender: FDA-Public Use
  Company Number: US-PFIZER INC-2012139385

PATIENT
  Age: 32 Year
  Sex: Female
  Weight: 57.143 kg

DRUGS (2)
  1. CHANTIX [Suspect]
     Indication: SMOKING CESSATION THERAPY
     Dosage: 0.5 MG, DAILY
     Route: 048
     Dates: start: 20120608
  2. KEPPRA [Concomitant]
     Indication: CONVULSION
     Dosage: 500 MG, 2X/DAY

REACTIONS (6)
  - FEELING ABNORMAL [None]
  - EMOTIONAL DISORDER [None]
  - ANGER [None]
  - VOMITING [None]
  - DEPRESSED MOOD [None]
  - NAUSEA [None]
